FAERS Safety Report 5384971-5 (Version None)
Quarter: 2007Q3

REPORT INFORMATION
  Report Type: 
  Country: None (occurrence: None)
  Receive Date: 20070709
  Receipt Date: 20070620
  Transmission Date: 20080115
  Serious: Yes (Other)
  Sender: FDA-Public Use
  Company Number: US200706004603

PATIENT
  Age: 74 Year
  Sex: Female

DRUGS (5)
  1. HUMALOG [Suspect]
     Indication: DIABETES MELLITUS
     Dates: start: 20061001
  2. HUMULIN 70/30 [Suspect]
     Dates: end: 20061001
  3. LANTUS [Concomitant]
  4. COUMADIN [Concomitant]
  5. TOPROL-XL [Concomitant]

REACTIONS (4)
  - ANXIETY [None]
  - ARTERIAL STENT INSERTION [None]
  - NERVOUSNESS [None]
  - SKIN REACTION [None]
